FAERS Safety Report 11753124 (Version 3)
Quarter: 2015Q4

REPORT INFORMATION
  Report Type: Spontaneous
  Country: JP (occurrence: JP)
  Receive Date: 20151119
  Receipt Date: 20151230
  Transmission Date: 20160304
  Serious: Yes (Death)
  Sender: FDA-Public Use
  Company Number: JP-ROCHE-1662261

PATIENT
  Age: 74 Year
  Sex: Male

DRUGS (2)
  1. GRTPA [Suspect]
     Active Substance: ALTEPLASE
     Indication: CEREBROVASCULAR DISORDER
     Route: 042
     Dates: start: 20151110
  2. RADICUT [Suspect]
     Active Substance: EDARAVONE
     Indication: CEREBRAL INFARCTION
     Route: 042
     Dates: start: 20151110

REACTIONS (7)
  - Hepatic function abnormal [Unknown]
  - Blood pressure decreased [Recovered/Resolved]
  - Pyrexia [Recovered/Resolved]
  - Pericardial effusion [Fatal]
  - Platelet count decreased [Unknown]
  - Renal impairment [Unknown]
  - Intracardiac thrombus [Fatal]

NARRATIVE: CASE EVENT DATE: 20151111
